FAERS Safety Report 9366526 (Version 1)
Quarter: 2013Q2

REPORT INFORMATION
  Report Type: Spontaneous
  Country: US (occurrence: US)
  Receive Date: 20130625
  Receipt Date: 20130625
  Transmission Date: 20140414
  Serious: No
  Sender: FDA-Public Use
  Company Number: US-PFIZER INC-2013187948

PATIENT
  Sex: Female

DRUGS (1)
  1. LYRICA [Suspect]
     Dosage: 75 MG, UNK

REACTIONS (5)
  - Rash [Unknown]
  - Muscle spasms [Unknown]
  - Euphoric mood [Unknown]
  - Dizziness [Unknown]
  - Fatigue [Unknown]
